FAERS Safety Report 9882281 (Version 3)
Quarter: 2014Q1

REPORT INFORMATION
  Report Type: Spontaneous
  Country: US (occurrence: US)
  Receive Date: 20140207
  Receipt Date: 20140328
  Transmission Date: 20141002
  Serious: Yes (Death, Hospitalization)
  Sender: FDA-Public Use
  Company Number: US-GLAXOSMITHKLINE-A0835472A

PATIENT
  Age: 75 Year
  Sex: Male
  Weight: 114.5 kg

DRUGS (4)
  1. AVANDIA [Suspect]
     Indication: DIABETES MELLITUS
     Dosage: 8MG PER DAY
     Route: 048
     Dates: start: 20020423, end: 200905
  2. ACCUPRIL [Concomitant]
  3. GLUCOTROL [Concomitant]
  4. PROTONIX [Concomitant]

REACTIONS (5)
  - Pulmonary oedema [Fatal]
  - Cardiac failure congestive [Fatal]
  - Cerebrovascular accident [Unknown]
  - Hypertension [Fatal]
  - Coronary artery disease [Unknown]
